FAERS Safety Report 15684316 (Version 4)
Quarter: 2019Q3

REPORT INFORMATION
  Report Type: Spontaneous
  Country: JP (occurrence: JP)
  Receive Date: 20181204
  Receipt Date: 20190925
  Transmission Date: 20191004
  Serious: Yes (Hospitalization, Disabling)
  Sender: FDA-Public Use
  Company Number: JP-ASTRAZENECA-2018SF57889

PATIENT
  Age: 77 Year
  Sex: Male
  Weight: 50 kg

DRUGS (17)
  1. REBAMIPIDE [Concomitant]
     Active Substance: REBAMIPIDE
     Route: 048
  2. BENET [Concomitant]
     Active Substance: RISEDRONATE SODIUM
     Route: 065
  3. MAGMITT [Concomitant]
     Active Substance: MAGNESIUM OXIDE
     Indication: CONSTIPATION
     Route: 065
     Dates: start: 20181004
  4. ALLOID G [Concomitant]
     Active Substance: SODIUM ALGINATE
     Indication: RADIATION OESOPHAGITIS
     Route: 065
     Dates: start: 20180824
  5. IMFINZI [Suspect]
     Active Substance: DURVALUMAB
     Indication: NON-SMALL CELL LUNG CANCER
     Route: 041
     Dates: start: 20181002, end: 20181002
  6. TEGRETOL [Concomitant]
     Active Substance: CARBAMAZEPINE
     Indication: TRIGEMINAL NEURALGIA
     Route: 065
  7. DAIPHEN [Concomitant]
     Active Substance: SULFAMETHOXAZOLE\TRIMETHOPRIM
     Route: 065
  8. BLOSTAR M [Concomitant]
     Indication: CHRONIC GASTRITIS
     Route: 048
  9. CRAVIT [Concomitant]
     Active Substance: LEVOFLOXACIN
     Route: 041
     Dates: start: 20181028, end: 20181028
  10. NAIXAN [Concomitant]
     Active Substance: NAPROXEN SODIUM
     Route: 048
     Dates: start: 20180815
  11. ETIZOLAM [Concomitant]
     Active Substance: ETIZOLAM
     Indication: TRIGEMINAL NEURALGIA
     Route: 065
  12. HOKUNALIN:TAPE [Concomitant]
     Active Substance: TULOBUTEROL
     Dates: start: 20180712
  13. LYRICA [Concomitant]
     Active Substance: PREGABALIN
     Route: 065
  14. RABEPRAZOLE NA [Concomitant]
     Active Substance: RABEPRAZOLE SODIUM
     Route: 065
  15. CALONAL [Concomitant]
     Active Substance: ACETAMINOPHEN
     Indication: TRIGEMINAL NEURALGIA
     Route: 065
     Dates: start: 20180904
  16. BELSOMRA [Concomitant]
     Active Substance: SUVOREXANT
     Indication: INSOMNIA
     Route: 065
     Dates: start: 20180806
  17. TRANSAMIN [Concomitant]
     Active Substance: TRANEXAMIC ACID
     Indication: RADIATION OESOPHAGITIS
     Dates: start: 20180901

REACTIONS (3)
  - Radiation pneumonitis [Recovering/Resolving]
  - Interstitial lung disease [Unknown]
  - Radiation oesophagitis [Recovering/Resolving]

NARRATIVE: CASE EVENT DATE: 20181022
